FAERS Safety Report 8356555-8 (Version None)
Quarter: 2012Q2

REPORT INFORMATION
  Report Type: 
  Country: None (occurrence: None)
  Receive Date: 20120514
  Receipt Date: 20120507
  Transmission Date: 20120825
  Serious: Yes (Hospitalization, Other)
  Sender: FDA-Public Use
  Company Number: PHHY2012AU036273

PATIENT
  Sex: Female

DRUGS (6)
  1. CLOZARIL [Suspect]
     Indication: SCHIZOPHRENIA
     Dosage: 250 MG, NOCTE
     Dates: start: 20020301
  2. ATORVASTATIN CALCIUM [Concomitant]
     Indication: HYPERCHOLESTEROLAEMIA
     Dosage: 20 MG, AT NIGHT
  3. COLOXYL [Concomitant]
     Indication: CONSTIPATION
     Dosage: 100 MG AT NIGHT
  4. PERINDOPRIL ERBUMINE [Concomitant]
     Indication: HYPERTENSION
     Dosage: 5 MG, AT NIGHT
  5. MOVIPREP [Concomitant]
     Indication: CONSTIPATION
     Dosage: 2 TABLETS AT NIGHT
  6. DIAMICRON MR [Concomitant]
     Indication: DIABETES MELLITUS
     Dosage: 60 MG IN THE MORNING

REACTIONS (15)
  - BLOOD PRESSURE ABNORMAL [None]
  - SCHIZOPHRENIA, DISORGANISED TYPE [None]
  - CARDIOMYOPATHY [None]
  - RIGHT VENTRICULAR SYSTOLIC PRESSURE INCREASED [None]
  - PERICARDIAL EFFUSION [None]
  - BLOOD CREATINE PHOSPHOKINASE INCREASED [None]
  - ILLUSION [None]
  - TRICUSPID VALVE INCOMPETENCE [None]
  - SCHIZOPHRENIA [None]
  - ISCHAEMIC CARDIOMYOPATHY [None]
  - DIASTOLIC DYSFUNCTION [None]
  - ECHOCARDIOGRAM ABNORMAL [None]
  - LEFT ATRIAL DILATATION [None]
  - SINUS TACHYCARDIA [None]
  - CARDIAC HYPERTROPHY [None]
